FAERS Safety Report 7571150-6 (Version None)
Quarter: 2011Q2

REPORT INFORMATION
  Report Type: 
  Country: None (occurrence: None)
  Receive Date: 20110620
  Receipt Date: 20110609
  Transmission Date: 20111010
  Serious: Yes (Life-Threatening)
  Sender: FDA-Public Use
  Company Number: GER/GER/11/0018715

PATIENT
  Age: 80 Year
  Sex: Male
  Weight: 90 kg

DRUGS (11)
  1. DECORTIN-H (PREDNISOLONE) [Concomitant]
  2. SPIRONOLACTONE [Concomitant]
  3. ACETAMINOPHEN [Concomitant]
  4. TETRAZEPAM (TETRAZEPAM) [Concomitant]
  5. RAMIPRIL [Concomitant]
  6. ASPIRIN [Concomitant]
  7. SIMVASTATIN [Concomitant]
  8. LEVOTHYROXIN-NATRIUM (LEVOTHYROXINE) [Concomitant]
  9. FUROSEMIDE [Concomitant]
  10. GLIMEPIRIDE [Suspect]
     Indication: DIABETES MELLITUS
     Dosage: 1 MG, 1 IN 1 D, ORAL
     Route: 048
     Dates: start: 20110101, end: 20110124
  11. BISOPROLOL FUMARATE [Concomitant]

REACTIONS (3)
  - HYPOGLYCAEMIA [None]
  - LOSS OF CONSCIOUSNESS [None]
  - COMA [None]
